FAERS Safety Report 12470045 (Version 1)
Quarter: 2016Q2

REPORT INFORMATION
  Report Type: Report from Study
  Country: BR (occurrence: BR)
  Receive Date: 20160616
  Receipt Date: 20160616
  Transmission Date: 20160815
  Serious: Yes (Other)
  Sender: FDA-Public Use
  Company Number: PHHY2016BR080496

PATIENT
  Sex: Female
  Weight: 60 kg

DRUGS (2)
  1. FORASEQ [Suspect]
     Active Substance: BUDESONIDE\FORMOTEROL FUMARATE
     Indication: BRONCHITIS CHRONIC
     Dosage: 1 DF, BID (SHE ASPIRED A CAPSULE, AND 30 MINUTES LATER SHE ASPIRED ANOTHER CAPSULE)
     Route: 055
  2. FORASEQ [Suspect]
     Active Substance: BUDESONIDE\FORMOTEROL FUMARATE
     Indication: ASTHMA
     Dosage: 1 DF (200 UG), Q12H
     Route: 055

REACTIONS (13)
  - Malaise [Unknown]
  - Pain [Unknown]
  - Dyspnoea [Unknown]
  - Blood pressure increased [Unknown]
  - Appendicitis [Unknown]
  - Musculoskeletal chest pain [Unknown]
  - Blood cholesterol increased [Unknown]
  - Ophthalmic vein thrombosis [Unknown]
  - Fatigue [Unknown]
  - Asthma [Unknown]
  - Visual impairment [Unknown]
  - Bronchitis chronic [Unknown]
  - Chest discomfort [Unknown]
